FAERS Safety Report 5342485-2 (Version None)
Quarter: 2007Q2

REPORT INFORMATION
  Report Type: 
  Country: None (occurrence: None)
  Receive Date: 20070416
  Receipt Date: 20070110
  Transmission Date: 20071010
  Serious: No
  Sender: FDA-Public Use
  Company Number: 2007SP000120

PATIENT
  Age: 80 Year
  Sex: Female
  Weight: 61.2356 kg

DRUGS (4)
  1. LUNESTA [Suspect]
     Indication: INSOMNIA
     Dosage: SEE IMAGE
     Route: 048
     Dates: start: 20061201, end: 20070101
  2. XANAX [Concomitant]
  3. ANTIHYPERTENSIVES [Concomitant]
  4. ANTI-DIABETICS [Concomitant]

REACTIONS (1)
  - INSOMNIA [None]
